FAERS Safety Report 14913444 (Version 2)
Quarter: 2018Q3

REPORT INFORMATION
  Report Type: Report from Study
  Country: IL (occurrence: IL)
  Receive Date: 20180518
  Receipt Date: 20180707
  Transmission Date: 20181010
  Serious: Yes (Death, Life-Threatening, Hospitalization, Other)
  Sender: FDA-Public Use
  Company Number: IL-AMGEN-ISRSL2018027601

PATIENT
  Sex: Female

DRUGS (1)
  1. PROLIA [Suspect]
     Active Substance: DENOSUMAB
     Indication: PRODUCT USED FOR UNKNOWN INDICATION
     Dosage: UNK
     Route: 065
     Dates: start: 2017

REACTIONS (5)
  - Purulence [Unknown]
  - Post procedural complication [Unknown]
  - Death [Fatal]
  - Intestinal perforation [Unknown]
  - Intestinal operation [Unknown]
